FAERS Safety Report 12494819 (Version 4)
Quarter: 2016Q4

REPORT INFORMATION
  Report Type: Spontaneous
  Country: US (occurrence: US)
  Receive Date: 20160624
  Receipt Date: 20161207
  Transmission Date: 20170207
  Serious: Yes (Other)
  Sender: FDA-Public Use
  Company Number: PHEH2016US015717

PATIENT
  Sex: Male

DRUGS (1)
  1. GLEEVEC [Suspect]
     Active Substance: IMATINIB MESYLATE
     Indication: CHRONIC MYELOID LEUKAEMIA
     Dosage: 400 MG, QD
     Route: 048
     Dates: start: 20160604

REACTIONS (7)
  - Haematochezia [Unknown]
  - Diarrhoea [Recovered/Resolved with Sequelae]
  - Gastrooesophageal reflux disease [Unknown]
  - Eye swelling [Unknown]
  - Gastrointestinal tract irritation [Unknown]
  - Oesophagitis [Unknown]
  - Nausea [Unknown]
